FAERS Safety Report 8494320-1 (Version None)
Quarter: 2012Q2

REPORT INFORMATION
  Report Type: 
  Country: None (occurrence: None)
  Receive Date: 20120628
  Receipt Date: 20120618
  Transmission Date: 20120825
  Serious: Yes (Hospitalization)
  Sender: FDA-Public Use
  Company Number: 2012SP033472

PATIENT
  Age: 8 Year
  Sex: Female

DRUGS (5)
  1. ACETYLCYSTEINE [Concomitant]
  2. CELESTAMINE TAB [Suspect]
     Indication: BRONCHITIS
     Dosage: PO
     Route: 048
     Dates: start: 20040101, end: 20040101
  3. AUGMENTIN '125' [Suspect]
     Indication: BRONCHITIS
     Dosage: PO
     Route: 048
     Dates: start: 20040101, end: 20040101
  4. MAXILASE [Concomitant]
  5. HELICIDINE [Concomitant]

REACTIONS (1)
  - STEVENS-JOHNSON SYNDROME [None]
